FAERS Safety Report 8068962-1 (Version None)
Quarter: 2012Q1

REPORT INFORMATION
  Report Type: 
  Country: None (occurrence: None)
  Receive Date: 20120125
  Receipt Date: 20120117
  Transmission Date: 20120608
  Serious: Yes (Hospitalization)
  Sender: FDA-Public Use
  Company Number: FR-VERTEX PHARMACEUTICALS INC.-AE-2011-004369

PATIENT
  Sex: Female
  Weight: 50 kg

DRUGS (8)
  1. LEVOTHYROXINE SODIUM [Concomitant]
     Indication: THYROIDITIS
     Route: 048
  2. LEXOMIL [Concomitant]
     Indication: PRODUCT USED FOR UNKNOWN INDICATION
  3. COPEGUS [Concomitant]
     Route: 048
     Dates: start: 20111110, end: 20111122
  4. VX-950 [Suspect]
     Indication: HEPATITIS C
     Route: 048
     Dates: start: 20110831, end: 20111118
  5. PEGASYS [Concomitant]
     Indication: HEPATITIS C
     Route: 048
     Dates: start: 20110831, end: 20111116
  6. OMEPRAZOLE [Concomitant]
     Indication: PRODUCT USED FOR UNKNOWN INDICATION
  7. COPEGUS [Concomitant]
     Indication: HEPATITIS C
     Route: 048
     Dates: start: 20110831, end: 20111110
  8. NEORECORMON [Concomitant]
     Indication: ANAEMIA
     Route: 058
     Dates: start: 20110915

REACTIONS (4)
  - DRUG RASH WITH EOSINOPHILIA AND SYSTEMIC SYMPTOMS [None]
  - SKIN LESION [None]
  - PYREXIA [None]
  - RASH MACULO-PAPULAR [None]
